FAERS Safety Report 7118089-8 (Version None)
Quarter: 2010Q4

REPORT INFORMATION
  Report Type: 
  Country: None (occurrence: None)
  Receive Date: 20101123
  Receipt Date: 20100805
  Transmission Date: 20110411
  Serious: Yes (Other)
  Sender: FDA-Public Use
  Company Number: US-BAYER-201023616NA

PATIENT
  Age: 46 Year
  Sex: Female
  Weight: 86 kg

DRUGS (7)
  1. YASMIN [Suspect]
     Indication: CONTRACEPTION
     Route: 048
     Dates: start: 20061001, end: 20090101
  2. OCELLA [Suspect]
     Indication: CONTRACEPTION
     Dates: start: 20061001, end: 20090101
  3. YAZ [Suspect]
     Indication: CONTRACEPTION
     Dates: start: 20061001, end: 20090101
  4. HYDROCHLOROTHIAZIDE [Concomitant]
     Dates: start: 20030101
  5. INHALER [Concomitant]
     Indication: ASTHMA
  6. ASCORBIC ACID [Concomitant]
  7. NSAID`S [Concomitant]
     Dates: start: 20000101

REACTIONS (3)
  - ABDOMINAL PAIN [None]
  - ABDOMINAL PAIN UPPER [None]
  - CHOLECYSTECTOMY [None]
